FAERS Safety Report 19958690 (Version 1)
Quarter: 2021Q4

REPORT INFORMATION
  Report Type: Report from Study
  Country: KR (occurrence: KR)
  Receive Date: 20211015
  Receipt Date: 20211015
  Transmission Date: 20220303
  Serious: Yes (Death)
  Sender: FDA-Public Use
  Company Number: KR-PFIZER INC-202101328520

PATIENT

DRUGS (4)
  1. CARBOPLATIN [Suspect]
     Active Substance: CARBOPLATIN
     Indication: Small cell lung cancer extensive stage
     Dosage: UNK, CYCLIC (AREA UNDER THE CURVE OF 5 MG ML- 1 MIN- 1 ON DAY 1 OF EACH CYCLE; TREATED WITH FOUR TO
     Route: 042
  2. ETOPOSIDE [Suspect]
     Active Substance: ETOPOSIDE
     Indication: Small cell lung cancer extensive stage
     Dosage: 100 MG/M2, CYCLIC (ON DAYS 1 THROUGH 3 OF EACH CYCLE; TREATED WITH FOUR TO EIGHT CYCLES)
     Route: 042
  3. ATEZOLIZUMAB [Suspect]
     Active Substance: ATEZOLIZUMAB
     Indication: Small cell lung cancer extensive stage
     Dosage: 1200 MG, CYCLIC (ON DAY 1 OF EACH CYCLE; TREATED WITH FOUR TO EIGHT CYCLES)
     Route: 042
  4. ATEZOLIZUMAB [Suspect]
     Active Substance: ATEZOLIZUMAB
     Dosage: 1200 MG, EVERY 3 WEEKS (MAINTENANCE)
     Route: 042

REACTIONS (1)
  - Colitis [Fatal]
